FAERS Safety Report 20768459 (Version 1)
Quarter: 2022Q2

REPORT INFORMATION
  Report Type: Spontaneous
  Country: US (occurrence: None)
  Receive Date: 20220428
  Receipt Date: 20220428
  Transmission Date: 20220721
  Serious: No
  Sender: FDA-Public Use
  Company Number: None

PATIENT

DRUGS (1)
  1. SUBOXONE [Suspect]
     Active Substance: BUPRENORPHINE HYDROCHLORIDE\NALOXONE HYDROCHLORIDE
     Indication: Drug dependence
     Dosage: FREQUENCY : 3 TIMES A DAY;?
     Route: 060

REACTIONS (5)
  - Product substitution issue [None]
  - Drug intolerance [None]
  - Nausea [None]
  - Vomiting [None]
  - Headache [None]
